FAERS Safety Report 13718318 (Version 2)
Quarter: 2017Q3

REPORT INFORMATION
  Report Type: Spontaneous
  Country: JP (occurrence: JP)
  Receive Date: 20170705
  Receipt Date: 20170818
  Transmission Date: 20171127
  Serious: Yes (Other)
  Sender: FDA-Public Use
  Company Number: JP-PFIZER INC-2017282579

PATIENT
  Age: 49 Year
  Sex: Male

DRUGS (5)
  1. DICLOFENAC [Concomitant]
     Active Substance: DICLOFENAC
     Dosage: 25 MG, 3X/DAY
     Route: 048
     Dates: start: 20170105
  2. KETOPROFEN/OMEPRAZOLE [Concomitant]
     Dosage: 40 MG, 1X/DAY
     Route: 062
     Dates: start: 20170105
  3. LYRICA [Suspect]
     Active Substance: PREGABALIN
     Indication: PAIN
     Dosage: 75 MG, 1X/DAY
     Route: 048
     Dates: start: 20170627, end: 20170628
  4. TIZANIDINE. [Concomitant]
     Active Substance: TIZANIDINE
     Dosage: 1 MG, 3X/DAY
     Route: 048
     Dates: start: 20170105
  5. REBAMIPIDE [Concomitant]
     Active Substance: REBAMIPIDE
     Dosage: 100 MG, 3X/DAY
     Route: 048
     Dates: start: 20170105

REACTIONS (2)
  - Chromaturia [Unknown]
  - Rhabdomyolysis [Unknown]

NARRATIVE: CASE EVENT DATE: 20170628
